FAERS Safety Report 7153635-X (Version None)
Quarter: 2010Q4

REPORT INFORMATION
  Report Type: 
  Country: None (occurrence: None)
  Receive Date: 20101213
  Receipt Date: 20101208
  Transmission Date: 20110411
  Serious: Yes (Other)
  Sender: FDA-Public Use
  Company Number: A0890683A

PATIENT
  Sex: Female

DRUGS (1)
  1. OFATUMUMAB [Suspect]
     Indication: OSTEOCHONDROSIS
     Route: 065

REACTIONS (7)
  - ANXIETY [None]
  - BLOOD TEST [None]
  - CONDITION AGGRAVATED [None]
  - DRUG INEFFECTIVE [None]
  - OSTEOCHONDROSIS [None]
  - PAIN [None]
  - WALDENSTROM'S MACROGLOBULINAEMIA [None]
